FAERS Safety Report 8030557-3 (Version None)
Quarter: 2011Q4

REPORT INFORMATION
  Report Type: 
  Country: None (occurrence: None)
  Receive Date: 20111130
  Receipt Date: 20110509
  Transmission Date: 20120403
  Serious: Yes (Hospitalization, Other)
  Sender: FDA-Public Use
  Company Number: US200910005204

PATIENT
  Age: 35 Year
  Sex: Male

DRUGS (16)
  1. MIRAPEX [Concomitant]
  2. METFORMIN HCL [Concomitant]
  3. HYDROCHLOROTHIAZIDE [Concomitant]
  4. ACTOS [Concomitant]
  5. TRICOR [Concomitant]
  6. ENALAPRIL MALEATE [Concomitant]
  7. MULTIVITAMIN [Concomitant]
  8. ALLOPURINOL [Concomitant]
  9. LIPITOR [Concomitant]
  10. LANTUS [Concomitant]
  11. BYETTA [Suspect]
     Indication: DIABETES MELLITUS
     Dosage: 10 UG, BID
     Dates: start: 20070316, end: 20080927
  12. ASPIRIN [Concomitant]
  13. SUCRALFATE [Concomitant]
  14. EXENATIDE UNK STRENGTH PEN, DISPOSABLE DEVICE (EXENATIDE PEN (UNKNOWN [Concomitant]
  15. OMEPRAZOLE [Concomitant]
  16. METOCLOPRAMIDE HCL (METOCLOPRAMIDE HYDROCHLORIDE) [Concomitant]

REACTIONS (3)
  - PANCREATITIS [None]
  - OFF LABEL USE [None]
  - PANCREATITIS ACUTE [None]
